FAERS Safety Report 10929800 (Version 1)
Quarter: 2015Q1

REPORT INFORMATION
  Report Type: Spontaneous
  Country: CH (occurrence: CH)
  Receive Date: 20150319
  Receipt Date: 20150319
  Transmission Date: 20150721
  Serious: Yes (Other)
  Sender: FDA-Public Use
  Company Number: CH-ELI_LILLY_AND_COMPANY-CH201503002687

PATIENT
  Age: 69 Year
  Sex: Male

DRUGS (5)
  1. CRIZOTINIB [Suspect]
     Active Substance: CRIZOTINIB
     Indication: LUNG ADENOCARCINOMA METASTATIC
     Dosage: 250 MG, BID
     Route: 065
     Dates: start: 20140616, end: 20140728
  2. PEMETREXED [Suspect]
     Active Substance: PEMETREXED
     Dosage: UNK UNK, UNKNOWN
     Route: 065
     Dates: start: 20130220, end: 20140326
  3. PEMETREXED [Suspect]
     Active Substance: PEMETREXED
     Indication: LUNG ADENOCARCINOMA METASTATIC
     Dosage: UNK UNK, UNKNOWN
     Route: 065
     Dates: start: 20121129, end: 20130130
  4. CARBOPLATIN. [Concomitant]
     Active Substance: CARBOPLATIN
     Indication: LUNG ADENOCARCINOMA
     Dosage: UNK, UNKNOWN
     Route: 065
  5. CRIZOTINIB [Suspect]
     Active Substance: CRIZOTINIB
     Dosage: 200 MG, BID
     Route: 065
     Dates: start: 20140729

REACTIONS (9)
  - Pericardial disease [Unknown]
  - Myalgia [Unknown]
  - Off label use [Unknown]
  - Fatigue [Unknown]
  - Oedema peripheral [Unknown]
  - Femur fracture [Unknown]
  - Renal failure [Unknown]
  - Malignant neoplasm progression [Unknown]
  - Lung infiltration [Unknown]

NARRATIVE: CASE EVENT DATE: 201306
